FAERS Safety Report 9480815 (Version 1)
Quarter: 2013Q3

REPORT INFORMATION
  Report Type: Spontaneous
  Country: US (occurrence: US)
  Receive Date: 20130828
  Receipt Date: 20130828
  Transmission Date: 20140515
  Serious: Yes (Hospitalization, Other)
  Sender: FDA-Public Use
  Company Number: US-AMGEN-KDL124454

PATIENT
  Age: 49 Year
  Sex: Female

DRUGS (1)
  1. ENBREL [Suspect]
     Indication: RHEUMATOID ARTHRITIS
     Dosage: 50 MG, 2 TIMES/WK
     Route: 058
     Dates: start: 20050107, end: 20050114

REACTIONS (9)
  - Hypersensitivity [Unknown]
  - Loss of consciousness [Unknown]
  - Pharyngeal oedema [Unknown]
  - Swelling face [Unknown]
  - Swelling [Unknown]
  - Rash generalised [Unknown]
  - Lethargy [Unknown]
  - Influenza like illness [Unknown]
  - Pyrexia [Unknown]
